FAERS Safety Report 13165670 (Version 1)
Quarter: 2017Q1

REPORT INFORMATION
  Report Type: Spontaneous
  Country: US (occurrence: US)
  Receive Date: 20170126
  Receipt Date: 20170126
  Transmission Date: 20170428
  Serious: No
  Sender: FDA-Public Use
  Company Number: None

PATIENT
  Age: 62 Year
  Sex: Male
  Weight: 99.8 kg

DRUGS (1)
  1. FLUOROURACIL. [Suspect]
     Active Substance: FLUOROURACIL
     Indication: ACTINIC KERATOSIS
     Route: 061
     Dates: start: 20100320, end: 20100409

REACTIONS (6)
  - Erythema multiforme [None]
  - Rash [None]
  - Scab [None]
  - Urticaria [None]
  - Pruritus [None]
  - Skin exfoliation [None]
